FAERS Safety Report 25757204 (Version 1)
Quarter: 2025Q3

REPORT INFORMATION
  Report Type: Spontaneous
  Country: US (occurrence: US)
  Receive Date: 20250903
  Receipt Date: 20250903
  Transmission Date: 20251021
  Serious: No
  Sender: MERZ
  Company Number: US-MRZWEB-2025080000044

PATIENT

DRUGS (1)
  1. XEOMIN [Suspect]
     Active Substance: INCOBOTULINUMTOXINA
     Indication: Blepharospasm

REACTIONS (4)
  - Injection site infection [Unknown]
  - Dry eye [Unknown]
  - Eyelid ptosis [Unknown]
  - Dry mouth [Unknown]
